FAERS Safety Report 8592469 (Version 2)
Quarter: 2012Q4

REPORT INFORMATION
  Report Type: 
  Country: US (occurrence: US)
  Receive Date: 20120601
  Receipt Date: 20121102
  Transmission Date: 20130627
  Serious: No
  Sender: FDA-Public Use
  Company Number: US-ASTRAZENECA-2012SE01193

PATIENT
  Age: 64 Year
  Sex: Female

DRUGS (2)
  1. ATACAND HCT [Suspect]
     Dosage: 16/12.5 MG,UNKNOWN
     Route: 048
  2. TOPROL XL [Suspect]
     Route: 048

REACTIONS (3)
  - Arthritis [Unknown]
  - Weight decreased [Unknown]
  - Drug dose omission [Unknown]
